FAERS Safety Report 9124110 (Version 2)
Quarter: 2013Q3

REPORT INFORMATION
  Report Type: Report from Study
  Country: FR (occurrence: FR)
  Receive Date: 20130227
  Receipt Date: 20130904
  Transmission Date: 20140515
  Serious: Yes (Life-Threatening, Hospitalization)
  Sender: FDA-Public Use
  Company Number: FR-ROCHE-1189431

PATIENT
  Age: 15 Year
  Sex: Female
  Weight: 54 kg

DRUGS (5)
  1. RITUXIMAB [Suspect]
     Indication: LEUKAEMIA
     Route: 065
     Dates: start: 20120920, end: 20120920
  2. HYDROCORTISONE [Suspect]
     Indication: LEUKAEMIA
     Route: 037
     Dates: start: 20120915, end: 20120922
  3. ONCOVIN [Suspect]
     Indication: LEUKAEMIA
     Route: 065
     Dates: start: 20120920
  4. DOXORUBICINE [Suspect]
     Indication: LEUKAEMIA
     Route: 065
     Dates: start: 20120920
  5. VEPESIDE [Suspect]
     Indication: LEUKAEMIA
     Route: 065

REACTIONS (1)
  - Gastrointestinal haemorrhage [Unknown]
